FAERS Safety Report 24733010 (Version 1)
Quarter: 2024Q4

REPORT INFORMATION
  Report Type: Spontaneous
  Country: US (occurrence: US)
  Receive Date: 20241213
  Receipt Date: 20241213
  Transmission Date: 20250115
  Serious: No
  Sender: SANOFI AVENTIS
  Company Number: US-SA-2024SA368543

PATIENT
  Sex: Male
  Weight: 65.77 kg

DRUGS (2)
  1. ELOCTATE [Suspect]
     Active Substance: EFMOROCTOCOG ALFA
     Indication: Factor VIII deficiency
     Dosage: 3355 IU, QW
     Route: 042
     Dates: start: 202310
  2. ELOCTATE [Suspect]
     Active Substance: EFMOROCTOCOG ALFA
     Indication: Factor VIII deficiency
     Dosage: 3355 IU, QW
     Route: 042
     Dates: start: 202310

REACTIONS (2)
  - Tooth infection [Unknown]
  - Weight decreased [Unknown]
